FAERS Safety Report 15643406 (Version 1)
Quarter: 2018Q4

REPORT INFORMATION
  Report Type: Report from Study
  Country: US (occurrence: US)
  Receive Date: 20181121
  Receipt Date: 20181121
  Transmission Date: 20190205
  Serious: Yes (Hospitalization, Other)
  Sender: FDA-Public Use
  Company Number: PHEH2018US048702

PATIENT
  Sex: Male

DRUGS (1)
  1. ENTRESTO [Suspect]
     Active Substance: SACUBITRIL\VALSARTAN
     Indication: PRODUCT USED FOR UNKNOWN INDICATION
     Route: 048

REACTIONS (7)
  - Joint dislocation [Unknown]
  - Hypothyroidism [Unknown]
  - Dyspnoea [Unknown]
  - Blood pressure decreased [Unknown]
  - Condition aggravated [Unknown]
  - Weight increased [Unknown]
  - Fluid retention [Unknown]
